FAERS Safety Report 21755641 (Version 2)
Quarter: 2023Q2

REPORT INFORMATION
  Report Type: Spontaneous
  Country: US (occurrence: US)
  Receive Date: 20221220
  Receipt Date: 20230417
  Transmission Date: 20230722
  Serious: Yes (Death, Life-Threatening, Hospitalization, Other)
  Sender: FDA-Public Use
  Company Number: US-009507513-2212USA005961

PATIENT
  Age: 57 Year
  Sex: Male
  Weight: 62.2 kg

DRUGS (14)
  1. KEYTRUDA [Suspect]
     Active Substance: PEMBROLIZUMAB
     Indication: Non-small cell lung cancer
     Dosage: UNK, 21 DAY (11 DOSES RECEIVED)
     Route: 042
     Dates: start: 20220418, end: 20221115
  2. CHOLECALCIFEROL [Concomitant]
     Active Substance: CHOLECALCIFEROL
     Dosage: 1 CAPSULE, QD
     Route: 048
  3. CYCLOBENZAPRINE HYDROCHLORIDE [Concomitant]
     Active Substance: CYCLOBENZAPRINE HYDROCHLORIDE
     Dosage: 5 MG, PRN; EVERY 8 HOURS (Q8H)
  4. FLUCONAZOLE [Concomitant]
     Active Substance: FLUCONAZOLE
     Indication: Candida infection
     Dosage: 1 TAB, QD
     Route: 048
  5. LIDOCAINE\PRILOCAINE [Concomitant]
     Active Substance: LIDOCAINE\PRILOCAINE
     Dosage: 1 APPLICATION, ONCE; APPLY TOPICALLY TO PORT AREA 1 HOUR PRIOR TO APPOINTMENT
     Route: 061
  6. LORAZEPAM [Concomitant]
     Active Substance: LORAZEPAM
     Dosage: 0.5 MG, PRN; EVERY 6 HOURS (Q6H)
     Route: 048
  7. VITAMINS [Concomitant]
     Active Substance: VITAMINS
     Dosage: 1 TAB, QD; STRENGTH: 1 TAB
     Route: 048
  8. NYSTATIN [Concomitant]
     Active Substance: NYSTATIN
     Dosage: 5 MILLILITER, QID; STRENGTH: 100000 UNIT/ML
     Route: 048
  9. OLANZAPINE [Concomitant]
     Active Substance: OLANZAPINE
     Dosage: 1 TAB, NIGHTLY AS NEEDED
     Route: 048
  10. OMEPRAZOLE [Concomitant]
     Active Substance: OMEPRAZOLE
     Dosage: 1 CAPSULE, EVERY DAY
     Route: 048
  11. ONDANSETRON HYDROCHLORIDE [Concomitant]
     Active Substance: ONDANSETRON HYDROCHLORIDE
     Dosage: 8 MG, EVERY 8 HOURS (Q8H) AS NEEDED; 10 DAYS QUANTITY 30
  12. PREDNISONE [Concomitant]
     Active Substance: PREDNISONE
     Dosage: 80 MILLIGRAM, QD; HELD WITH INFUSION
     Route: 048
  13. PROCHLORPERAZINE MALEATE [Concomitant]
     Active Substance: PROCHLORPERAZINE MALEATE
     Dosage: 10 MG, EVERY 6 HOURS (Q6H) AS NEEDED
     Route: 048
  14. TAMSULOSIN HYDROCHLORIDE [Concomitant]
     Active Substance: TAMSULOSIN HYDROCHLORIDE
     Dosage: 1 CAPSULE, QD
     Route: 048

REACTIONS (12)
  - CNS ventriculitis [Fatal]
  - Endocarditis [Unknown]
  - Meningitis [Unknown]
  - Gastrointestinal tube insertion [Unknown]
  - Intraventricular haemorrhage [Unknown]
  - Hydrocephalus [Unknown]
  - Subdural haematoma [Unknown]
  - Back pain [Unknown]
  - Weight decreased [Unknown]
  - Ataxia [Unknown]
  - Catheter site haemorrhage [Unknown]
  - Magnetic resonance imaging head abnormal [Unknown]

NARRATIVE: CASE EVENT DATE: 20220512
